FAERS Safety Report 12821884 (Version 1)
Quarter: 2016Q4

REPORT INFORMATION
  Report Type: Spontaneous
  Country: SK (occurrence: SK)
  Receive Date: 20161007
  Receipt Date: 20161007
  Transmission Date: 20170207
  Serious: Yes (Hospitalization)
  Sender: FDA-Public Use
  Company Number: SK-AMGEN-SVKSP2016137139

PATIENT
  Age: 65 Year
  Sex: Female

DRUGS (8)
  1. PROCORALAN [Suspect]
     Active Substance: IVABRADINE
     Indication: CARDIAC FAILURE CHRONIC
     Dosage: 10 MG, QD
     Route: 048
     Dates: start: 201602, end: 20160412
  2. CORDARONE [Concomitant]
     Active Substance: AMIODARONE HYDROCHLORIDE
     Indication: CORONARY ARTERY DISEASE
     Dosage: 1 DF, QD
  3. FURON [Concomitant]
     Active Substance: FUROSEMIDE
     Indication: CARDIAC FAILURE CHRONIC
     Dosage: 1 DF, QD
     Route: 048
  4. ENELBIN [Concomitant]
     Active Substance: NAFRONYL
     Indication: PERIPHERAL ISCHAEMIA
     Dosage: 2 TABLETS DAILY
     Route: 048
     Dates: end: 20160405
  5. GLYCERYL TRINITRATE [Concomitant]
     Active Substance: NITROGLYCERIN
     Indication: CORONARY ARTERY DISEASE
     Dosage: AS REQUIRED
     Route: 060
  6. OLICARD [Concomitant]
     Active Substance: ISOSORBIDE MONONITRATE
     Indication: CORONARY ARTERY DISEASE
     Dosage: 1 DF, QD
     Route: 048
     Dates: end: 20160405
  7. CONCOR [Concomitant]
     Active Substance: BISOPROLOL FUMARATE
     Indication: CORONARY ARTERY DISEASE
     Dosage: 5 MG, QD
     Route: 048
  8. COVERSYL ARGININE [Concomitant]
     Active Substance: PERINDOPRIL ARGININE
     Indication: HYPERTENSION
     Dosage: 5 MG, QD
     Route: 048

REACTIONS (7)
  - Pruritus [Recovering/Resolving]
  - Epistaxis [Recovered/Resolved]
  - Hypertension [Unknown]
  - Rash papular [Recovered/Resolved]
  - Photopsia [Recovered/Resolved]
  - Dyspnoea [Unknown]
  - Drug interaction [Recovered/Resolved]

NARRATIVE: CASE EVENT DATE: 2016
